FAERS Safety Report 6612518-1 (Version None)
Quarter: 2010Q1

REPORT INFORMATION
  Report Type: 
  Country: None (occurrence: None)
  Receive Date: 20100303
  Receipt Date: 20100118
  Transmission Date: 20100710
  Serious: Yes (Death, Other)
  Sender: FDA-Public Use
  Company Number: US-BAXTER-2008BH010987

PATIENT
  Age: 59 Year
  Sex: Male
  Weight: 98 kg

DRUGS (32)
  1. HEPARIN SODIUM INJECTION [Suspect]
     Indication: HAEMODIALYSIS
     Route: 042
     Dates: start: 20071206, end: 20071206
  2. HEPARIN SODIUM INJECTION [Suspect]
     Indication: INTRAVENOUS CATHETER MANAGEMENT
     Route: 042
     Dates: start: 20071206, end: 20071206
  3. HEPARIN SODIUM INJECTION [Suspect]
     Route: 042
     Dates: start: 20071208, end: 20071208
  4. HEPARIN SODIUM INJECTION [Suspect]
     Route: 042
     Dates: start: 20071208, end: 20071208
  5. HEPARIN SODIUM INJECTION [Suspect]
     Route: 042
     Dates: start: 20071120, end: 20071204
  6. HEPARIN SODIUM INJECTION [Suspect]
     Route: 042
     Dates: start: 20071120, end: 20071204
  7. HEPARIN SODIUM INJECTION [Suspect]
     Route: 042
     Dates: start: 20071101, end: 20071201
  8. HEPARIN SODIUM INJECTION [Suspect]
     Route: 042
     Dates: start: 20071101, end: 20071201
  9. HEPARIN SODIUM INJECTION [Suspect]
     Route: 042
     Dates: start: 20071211, end: 20071211
  10. HEPARIN SODIUM INJECTION [Suspect]
     Route: 042
     Dates: start: 20071211, end: 20071211
  11. HEPARIN SODIUM INJECTION [Suspect]
     Route: 042
     Dates: start: 20071213, end: 20071213
  12. HEPARIN SODIUM INJECTION [Suspect]
     Route: 042
     Dates: start: 20071213, end: 20071213
  13. PREDNISONE [Concomitant]
     Indication: DRUG USE FOR UNKNOWN INDICATION
     Route: 065
  14. CYTOXAN [Concomitant]
     Indication: DRUG USE FOR UNKNOWN INDICATION
     Route: 065
  15. XANAX [Concomitant]
     Indication: DRUG USE FOR UNKNOWN INDICATION
     Route: 065
  16. PHOSLO [Concomitant]
     Indication: DRUG USE FOR UNKNOWN INDICATION
     Route: 065
  17. NEPHRO-VITE RX [Concomitant]
     Indication: DRUG USE FOR UNKNOWN INDICATION
     Route: 065
  18. PREDNISONE [Concomitant]
     Route: 065
  19. NIFEDICAL [Concomitant]
     Indication: DRUG USE FOR UNKNOWN INDICATION
     Route: 065
  20. PANTOPRAZOLE [Concomitant]
     Indication: DRUG USE FOR UNKNOWN INDICATION
     Route: 065
  21. CLONIDINE [Concomitant]
     Indication: DRUG USE FOR UNKNOWN INDICATION
     Route: 065
  22. PROCARDIA [Concomitant]
     Indication: DRUG USE FOR UNKNOWN INDICATION
     Route: 065
  23. ALPRAZOLAM [Concomitant]
     Indication: DRUG USE FOR UNKNOWN INDICATION
     Route: 065
  24. PRENAVITE [Concomitant]
     Indication: DRUG USE FOR UNKNOWN INDICATION
     Route: 065
  25. EPOGEN [Concomitant]
     Indication: DRUG USE FOR UNKNOWN INDICATION
     Route: 065
  26. HYDROCHLOROTHIAZIDE [Concomitant]
     Indication: DRUG USE FOR UNKNOWN INDICATION
     Route: 048
  27. CALAN [Concomitant]
     Indication: DRUG USE FOR UNKNOWN INDICATION
     Route: 048
  28. ASPIRIN [Concomitant]
     Indication: DRUG USE FOR UNKNOWN INDICATION
     Route: 048
  29. MULTI-VITAMINS [Concomitant]
     Indication: DRUG USE FOR UNKNOWN INDICATION
     Route: 048
  30. STOOL SOFTENER [Concomitant]
     Indication: DRUG USE FOR UNKNOWN INDICATION
     Route: 048
  31. DIPHENHYDRAMINE HCL [Concomitant]
     Indication: INSOMNIA
     Route: 048
  32. ATORVASTATIN CALCIUM [Concomitant]
     Indication: DRUG USE FOR UNKNOWN INDICATION
     Route: 048

REACTIONS (24)
  - ABDOMINAL PAIN [None]
  - ABDOMINAL PAIN UPPER [None]
  - BURNING SENSATION [None]
  - COAGULOPATHY [None]
  - COUGH [None]
  - DECREASED APPETITE [None]
  - DIARRHOEA [None]
  - DYSPEPSIA [None]
  - DYSPNOEA [None]
  - HEART RATE DECREASED [None]
  - INSOMNIA [None]
  - NAUSEA [None]
  - OBSTRUCTIVE AIRWAYS DISORDER [None]
  - PARAESTHESIA [None]
  - PERIPHERAL COLDNESS [None]
  - RASH GENERALISED [None]
  - RENAL FAILURE [None]
  - RESTLESSNESS [None]
  - RHINORRHOEA [None]
  - SKIN DISCOLOURATION [None]
  - SUDDEN CARDIAC DEATH [None]
  - THIRST [None]
  - THROAT IRRITATION [None]
  - WEGENER'S GRANULOMATOSIS [None]
